FAERS Safety Report 9357417 (Version 2)
Quarter: 2013Q2

REPORT INFORMATION
  Report Type: Spontaneous
  Country: CH (occurrence: CH)
  Receive Date: 20130620
  Receipt Date: 20130621
  Transmission Date: 20140414
  Serious: Yes (Hospitalization)
  Sender: FDA-Public Use
  Company Number: CH-ROCHE-1236645

PATIENT
  Sex: Female

DRUGS (12)
  1. ACTEMRA [Suspect]
     Indication: RHEUMATOID ARTHRITIS
     Route: 042
     Dates: start: 20130418
  2. BRUFEN [Concomitant]
     Dosage: AS REQUIRED
     Route: 065
  3. MAGNESIUM-DIASPORAL [Concomitant]
     Route: 065
  4. CO-DIOVANE [Concomitant]
     Dosage: DOSE: 160/25
     Route: 065
  5. CONCOR [Concomitant]
     Route: 065
  6. ASPIRIN CARDIO [Concomitant]
     Route: 065
  7. NITRODERM [Concomitant]
     Dosage: TTS 5 (1/DAY ONLY FOR 12 HOURS)
     Route: 065
  8. ADALAT RET [Concomitant]
     Dosage: DOSE: 30 AS RESERVED IF BLOOD PRESSURE EXCEEDS 170/110 MM HG.
     Route: 065
  9. SERETIDE DISKUS [Concomitant]
     Route: 065
  10. CONDROSULF [Concomitant]
     Route: 065
  11. MYDOCALM [Concomitant]
     Dosage: 1-2/DAY
     Route: 065
  12. NEXIUM [Concomitant]
     Route: 065

REACTIONS (2)
  - C-reactive protein increased [Recovered/Resolved]
  - Chills [Recovered/Resolved]
